FAERS Safety Report 23138498 (Version 2)
Quarter: 2023Q4

REPORT INFORMATION
  Report Type: Spontaneous
  Country: ES (occurrence: ES)
  Receive Date: 20231102
  Receipt Date: 20231117
  Transmission Date: 20240109
  Serious: Yes (Other)
  Sender: FDA-Public Use
  Company Number: ES-TEVA-2023-ES-2940789

PATIENT
  Age: 7 Decade
  Sex: Female

DRUGS (25)
  1. CARBOPLATIN [Suspect]
     Active Substance: CARBOPLATIN
     Indication: Malignant peritoneal neoplasm
     Dosage: SIX CYCLES
     Route: 065
     Dates: start: 200802, end: 200806
  2. CARBOPLATIN [Suspect]
     Active Substance: CARBOPLATIN
     Indication: Ovarian cancer
     Route: 065
     Dates: start: 20090324, end: 20090718
  3. CARBOPLATIN [Suspect]
     Active Substance: CARBOPLATIN
     Dosage: SIX CYCLES OF CARBOPLATIN
     Route: 065
     Dates: start: 201312, end: 201405
  4. CARBOPLATIN [Suspect]
     Active Substance: CARBOPLATIN
     Route: 065
     Dates: start: 20181204, end: 20190305
  5. CARBOPLATIN [Suspect]
     Active Substance: CARBOPLATIN
     Route: 065
     Dates: start: 202109
  6. DOXORUBICIN [Suspect]
     Active Substance: DOXORUBICIN
     Indication: Malignant peritoneal neoplasm
     Dosage: SIX CYCLES
     Route: 065
     Dates: start: 201312, end: 201405
  7. DOXORUBICIN [Suspect]
     Active Substance: DOXORUBICIN
     Indication: Ovarian cancer
     Dosage: 10 CYCLES
     Route: 065
     Dates: start: 20191017, end: 202008
  8. LETROZOLE [Suspect]
     Active Substance: LETROZOLE
     Indication: Malignant peritoneal neoplasm
     Route: 065
     Dates: start: 202103
  9. LETROZOLE [Suspect]
     Active Substance: LETROZOLE
     Indication: Ovarian cancer
  10. PACLITAXEL [Suspect]
     Active Substance: PACLITAXEL
     Indication: Malignant peritoneal neoplasm
     Route: 065
     Dates: start: 200802, end: 200806
  11. PACLITAXEL [Suspect]
     Active Substance: PACLITAXEL
     Indication: Ovarian cancer
     Route: 065
     Dates: start: 20090324, end: 20090718
  12. PACLITAXEL [Suspect]
     Active Substance: PACLITAXEL
     Dosage: 41 CYCLES OF PACLITAXEL ON DAYS 1, 8, AND 15
     Route: 065
     Dates: start: 20140826, end: 20181113
  13. PACLITAXEL [Suspect]
     Active Substance: PACLITAXEL
     Dosage: GIVEN INITIALLY FORTNIGHTLY AND THEN EVERY 21 DAYS
     Route: 065
  14. TRABECTEDIN [Suspect]
     Active Substance: TRABECTEDIN
     Indication: Malignant peritoneal neoplasm
     Dosage: 10 CYCLES
     Route: 065
     Dates: start: 20191017, end: 202008
  15. TRABECTEDIN [Suspect]
     Active Substance: TRABECTEDIN
     Indication: Ovarian cancer
  16. TOPOTECAN [Suspect]
     Active Substance: TOPOTECAN HYDROCHLORIDE
     Indication: Malignant peritoneal neoplasm
     Route: 065
  17. TOPOTECAN [Suspect]
     Active Substance: TOPOTECAN HYDROCHLORIDE
     Indication: Ovarian cancer
  18. GEMCITABINE [Suspect]
     Active Substance: GEMCITABINE
     Indication: Malignant peritoneal neoplasm
     Dosage: TWO CYCLES
     Route: 065
  19. GEMCITABINE [Suspect]
     Active Substance: GEMCITABINE
     Indication: Ovarian cancer
  20. NIRAPARIB [Suspect]
     Active Substance: NIRAPARIB
     Indication: Malignant peritoneal neoplasm
     Route: 065
  21. NIRAPARIB [Suspect]
     Active Substance: NIRAPARIB
     Indication: Ovarian cancer
  22. BEVACIZUMAB [Suspect]
     Active Substance: BEVACIZUMAB
     Indication: Malignant peritoneal neoplasm
     Dosage: 41 CYCLES
     Route: 065
     Dates: start: 20140826, end: 20181113
  23. BEVACIZUMAB [Suspect]
     Active Substance: BEVACIZUMAB
     Indication: Ovarian cancer
     Dosage: INITIALLY FORTNIGHTLY AND THEN EVERY 21 DAYS
     Route: 065
  24. IFOSFAMIDE [Suspect]
     Active Substance: IFOSFAMIDE
     Indication: Malignant peritoneal neoplasm
     Dosage: THREE CYCLES
     Route: 065
  25. IFOSFAMIDE [Suspect]
     Active Substance: IFOSFAMIDE
     Indication: Ovarian cancer

REACTIONS (9)
  - Thrombocytopenia [Unknown]
  - Haematotoxicity [Unknown]
  - Mucocutaneous toxicity [Unknown]
  - Dermatitis [Unknown]
  - Onycholysis [Unknown]
  - Mucosal inflammation [Unknown]
  - Drug hypersensitivity [Unknown]
  - Drug intolerance [Unknown]
  - Drug ineffective [Unknown]
